FAERS Safety Report 5563932-7 (Version None)
Quarter: 2007Q4

REPORT INFORMATION
  Report Type: 
  Country: None (occurrence: None)
  Receive Date: 20071217
  Receipt Date: 20071212
  Transmission Date: 20080405
  Serious: Yes (Other)
  Sender: FDA-Public Use
  Company Number: DE-WYE-G00704107

PATIENT
  Age: 40 Year
  Sex: Female

DRUGS (2)
  1. TREVILOR RETARD [Suspect]
     Route: 048
  2. AMOXICILLIN [Interacting]
     Dosage: UNKNOWN
     Route: 048
     Dates: start: 20070101

REACTIONS (2)
  - DRUG INTERACTION [None]
  - UNEVALUABLE EVENT [None]
